FAERS Safety Report 13985332 (Version 2)
Quarter: 2017Q4

REPORT INFORMATION
  Report Type: Report from Study
  Country: NL (occurrence: NL)
  Receive Date: 20170919
  Receipt Date: 20171213
  Transmission Date: 20180321
  Serious: Yes (Death, Other)
  Sender: FDA-Public Use
  Company Number: NL-AMGEN-NLDSL2017140793

PATIENT
  Age: 83 Year
  Sex: Male

DRUGS (1)
  1. XGEVA [Suspect]
     Active Substance: DENOSUMAB
     Indication: PROPHYLAXIS
     Dosage: 120 MG/1.70 ML, Q4WK
     Route: 058
     Dates: start: 20170801, end: 20170801

REACTIONS (1)
  - Death [Fatal]

NARRATIVE: CASE EVENT DATE: 20170906
